FAERS Safety Report 11748272 (Version 1)
Quarter: 2015Q4

REPORT INFORMATION
  Report Type: Spontaneous
  Country: BR (occurrence: BR)
  Receive Date: 20151117
  Receipt Date: 20151117
  Transmission Date: 20160304
  Serious: Yes (Other)
  Sender: FDA-Public Use
  Company Number: PHHY2015BR149703

PATIENT
  Sex: Male

DRUGS (1)
  1. FLOTAC [Suspect]
     Active Substance: DICLOFENAC SODIUM
     Indication: FOETAL EXPOSURE DURING PREGNANCY
     Route: 063

REACTIONS (3)
  - Milk allergy [Unknown]
  - Exposure during breast feeding [Unknown]
  - Haematochezia [Unknown]
